FAERS Safety Report 9412265 (Version 1)
Quarter: 2013Q3

REPORT INFORMATION
  Report Type: Spontaneous
  Country: US (occurrence: None)
  Receive Date: 20130719
  Receipt Date: 20130719
  Transmission Date: 20140515
  Serious: Yes (Life-Threatening)
  Sender: FDA-Public Use
  Company Number: None

PATIENT
  Age: 78 Year
  Sex: Female

DRUGS (1)
  1. TOVIAZ [Suspect]
     Indication: INCONTINENCE
     Dosage: 1 TABLET
     Route: 048
     Dates: start: 20130612, end: 20130613

REACTIONS (4)
  - Vision blurred [None]
  - Dizziness [None]
  - Joint swelling [None]
  - Local swelling [None]
